FAERS Safety Report 7526513-1 (Version None)
Quarter: 2011Q2

REPORT INFORMATION
  Report Type: 
  Country: None (occurrence: None)
  Receive Date: 20110606
  Receipt Date: 20110601
  Transmission Date: 20111010
  Serious: Yes (Death)
  Sender: FDA-Public Use
  Company Number: US-PFIZER INC-2011119705

PATIENT
  Age: 67 Year
  Sex: Female

DRUGS (2)
  1. TORISEL [Suspect]
     Indication: OVARIAN CANCER
     Dosage: 25 MG ON DAYS 1, 8, 15, AND 22 OF 28-DAY CYCLE
     Route: 042
     Dates: start: 20110415, end: 20110415
  2. BEVACIZUMAB [Suspect]
     Indication: OVARIAN CANCER
     Dosage: 10 MG/KG OVER 30-90 MINUTES ON DAYS 1 AND 15 OF A 28-DAY CYCLE
     Route: 042
     Dates: start: 20110415, end: 20110415

REACTIONS (1)
  - RESPIRATORY FAILURE [None]
